FAERS Safety Report 4353668-2 (Version None)
Quarter: 2004Q2

REPORT INFORMATION
  Report Type: 
  Country: None (occurrence: None)
  Receive Date: 20040430
  Receipt Date: 20040419
  Transmission Date: 20050107
  Serious: Yes (Other)
  Sender: FDA-Public Use
  Company Number: 2004209717DE

PATIENT
  Age: 82 Year
  Sex: Male

DRUGS (5)
  1. CAMPTOSAR [Suspect]
     Indication: COLON CANCER
     Dosage: 60 MG/M2, CYCLE 1, 2ND INFUSION,IV
     Route: 042
     Dates: start: 20030910, end: 20030910
  2. FLUOROURACIL [Concomitant]
  3. LEUCOVORIN CALCIUM [Concomitant]
  4. ATROPINE [Concomitant]
  5. DEXAMETHASONE [Concomitant]

REACTIONS (4)
  - COLON CANCER [None]
  - EMOTIONAL DISORDER [None]
  - MALIGNANT NEOPLASM PROGRESSION [None]
  - PAIN [None]
